FAERS Safety Report 24214989 (Version 1)
Quarter: 2024Q3

REPORT INFORMATION
  Report Type: Report from Study
  Country: AU (occurrence: AU)
  Receive Date: 20240815
  Receipt Date: 20240815
  Transmission Date: 20241017
  Serious: Yes (Other)
  Sender: ABBVIE
  Company Number: AU-ABBVIE-5878514

PATIENT
  Sex: Female

DRUGS (2)
  1. CARBIDOPA\LEVODOPA [Suspect]
     Active Substance: CARBIDOPA\LEVODOPA
     Indication: Parkinson^s disease
     Route: 050
  2. CARBIDOPA\LEVODOPA [Suspect]
     Active Substance: CARBIDOPA\LEVODOPA
     Route: 050

REACTIONS (20)
  - Optic atrophy [Unknown]
  - Hallucination [Unknown]
  - Magnetic resonance imaging abnormal [Unknown]
  - Central nervous system lesion [Unknown]
  - Device occlusion [Unknown]
  - Constipation [Not Recovered/Not Resolved]
  - Intracranial mass [Unknown]
  - On and off phenomenon [Recovering/Resolving]
  - Dyskinesia [Unknown]
  - Osteoarthritis [Unknown]
  - Fibula fracture [Unknown]
  - Arthralgia [Not Recovered/Not Resolved]
  - Dyschromatopsia [Unknown]
  - Vision blurred [Unknown]
  - Diplopia [Unknown]
  - Glaucoma [Unknown]
  - Infrequent bowel movements [Unknown]
  - Weight bearing difficulty [Not Recovered/Not Resolved]
  - Mobility decreased [Unknown]
  - Joint effusion [Unknown]

NARRATIVE: CASE EVENT DATE: 20050101
